FAERS Safety Report 9846411 (Version 1)
Quarter: 2014Q1

REPORT INFORMATION
  Report Type: Spontaneous
  Country: US (occurrence: None)
  Receive Date: 20140122
  Receipt Date: 20140122
  Transmission Date: 20141002
  Serious: Yes (Other)
  Sender: FDA-Public Use
  Company Number: TPU2014-00017

PATIENT
  Sex: Female

DRUGS (1)
  1. LIDODERM TOPICAL PATCH [Suspect]
     Indication: PAIN IN EXTREMITY
     Dosage: TOPICAL

REACTIONS (4)
  - Carpal tunnel decompression [None]
  - Pain [None]
  - Swelling [None]
  - Joint stiffness [None]
